FAERS Safety Report 13295657 (Version 2)
Quarter: 2017Q2

REPORT INFORMATION
  Report Type: Spontaneous
  Country: PT (occurrence: PT)
  Receive Date: 20170303
  Receipt Date: 20170406
  Transmission Date: 20170830
  Serious: Yes (Other)
  Sender: FDA-Public Use
  Company Number: PT-MYLANLABS-2017M1013219

PATIENT

DRUGS (2)
  1. KLACID OD 500 MG COMPRIMIDOS DE LIBERTA??O MODIFICADA [Suspect]
     Active Substance: CLARITHROMYCIN
     Indication: PHARYNGITIS
     Dosage: 500 MG, QD
     Route: 048
     Dates: start: 20170220, end: 20170220
  2. ASPIRINA GR [Concomitant]
     Indication: PLASMINOGEN ACTIVATOR INHIBITOR
     Dosage: UNK, QD

REACTIONS (3)
  - Erythema [Recovered/Resolved]
  - Rash generalised [Recovered/Resolved]
  - Acne [Recovered/Resolved]

NARRATIVE: CASE EVENT DATE: 20170220
